FAERS Safety Report 5061429-4 (Version None)
Quarter: 2006Q3

REPORT INFORMATION
  Report Type: 
  Country: None (occurrence: None)
  Receive Date: 20060719
  Receipt Date: 20060719
  Transmission Date: 20061208
  Serious: Yes (Hospitalization)
  Sender: FDA-Public Use
  Company Number: None

PATIENT
  Age: 84 Year
  Sex: Male

DRUGS (13)
  1. FUROSEMIDE [Suspect]
     Indication: FLUID RETENTION
     Dosage: 40 MG QD
     Dates: start: 19950301
  2. FUROSEMIDE [Suspect]
     Indication: HYPERTENSION
     Dosage: 40 MG QD
     Dates: start: 19950301
  3. METHADONE HCL [Concomitant]
  4. LORATADINE [Concomitant]
  5. WARFARIN SODIUM [Concomitant]
  6. ASPIRIN [Concomitant]
  7. LEVOTHYROXINE SODIUM [Concomitant]
  8. NITROGLYCERIN [Concomitant]
  9. ZOCOR [Concomitant]
  10. GLYBURIDE [Concomitant]
  11. LISINOPRIL [Concomitant]
  12. SENOKOT [Concomitant]
  13. GABAPENTIN [Concomitant]

REACTIONS (2)
  - RENAL FAILURE ACUTE [None]
  - UNEVALUABLE EVENT [None]
